FAERS Safety Report 4910374-0 (Version None)
Quarter: 2006Q1

REPORT INFORMATION
  Report Type: 
  Country: None (occurrence: None)
  Receive Date: 20060209
  Receipt Date: 20060201
  Transmission Date: 20060701
  Serious: Yes (Death)
  Sender: FDA-Public Use
  Company Number: 163-20785-06010183

PATIENT
  Age: 67 Year
  Sex: Male

DRUGS (8)
  1. THALOMID [Suspect]
     Indication: MULTIPLE MYELOMA
     Dosage: SEE IMAGE
     Route: 048
     Dates: start: 20040528, end: 20040803
  2. THALOMID [Suspect]
     Indication: MULTIPLE MYELOMA
     Dosage: SEE IMAGE
     Route: 048
     Dates: start: 20040803, end: 20050301
  3. THALOMID [Suspect]
     Indication: MULTIPLE MYELOMA
     Dosage: SEE IMAGE
     Route: 048
     Dates: start: 20050301, end: 20050610
  4. PERCOCET [Concomitant]
  5. DECADRON [Concomitant]
  6. MORPHINE [Concomitant]
  7. HYDROCHLOROTHIAZIDE [Concomitant]
  8. THYROID PILL (PILL) [Concomitant]

REACTIONS (1)
  - BRAIN MASS [None]
